FAERS Safety Report 5553639-4 (Version None)
Quarter: 2007Q4

REPORT INFORMATION
  Report Type: 
  Country: None (occurrence: None)
  Receive Date: 20071213
  Receipt Date: 20071211
  Transmission Date: 20080405
  Serious: Yes (Death)
  Sender: FDA-Public Use
  Company Number: PHHO2007IT15489

PATIENT
  Age: 53 Year
  Weight: 80 kg

DRUGS (7)
  1. IMATINIB [Suspect]
     Indication: ACUTE LYMPHOCYTIC LEUKAEMIA
     Dates: start: 20061117, end: 20061211
  2. VINCRISTINE [Concomitant]
     Indication: ACUTE LYMPHOCYTIC LEUKAEMIA
     Dates: start: 20061114
  3. DAUNOBLASTIN [Concomitant]
     Indication: ACUTE LYMPHOCYTIC LEUKAEMIA
     Dates: start: 20061114
  4. LASIX [Concomitant]
     Indication: OEDEMA
     Dosage: 25 MG
     Dates: start: 20061206, end: 20061214
  5. ASPARAGINASE [Concomitant]
     Indication: ACUTE LYMPHOCYTIC LEUKAEMIA
     Dates: start: 20061117
  6. TRIASPORIN [Concomitant]
  7. GLAZIDIM [Concomitant]

REACTIONS (12)
  - ALANINE AMINOTRANSFERASE INCREASED [None]
  - ASPARTATE AMINOTRANSFERASE INCREASED [None]
  - BLOOD BILIRUBIN INCREASED [None]
  - CARDIAC FAILURE [None]
  - COAGULOPATHY [None]
  - COMA [None]
  - HEPATOTOXICITY [None]
  - HYPOTENSION [None]
  - HYPOXIA [None]
  - OEDEMA [None]
  - PYREXIA [None]
  - RESPIRATORY FAILURE [None]
